FAERS Safety Report 4823080-8 (Version None)
Quarter: 2005Q4

REPORT INFORMATION
  Report Type: 
  Country: None (occurrence: None)
  Receive Date: 20051108
  Receipt Date: 20050802
  Transmission Date: 20060501
  Serious: Yes (Death)
  Sender: FDA-Public Use
  Company Number: US-MERCK-0508USA00959

PATIENT
  Age: 53 Year
  Sex: Male
  Weight: 88 kg

DRUGS (4)
  1. VIOXX [Suspect]
     Indication: BACK PAIN
     Route: 048
     Dates: start: 19991026, end: 20000105
  2. PAMELOR [Concomitant]
     Route: 065
     Dates: start: 19991026, end: 20000105
  3. XANAX [Concomitant]
     Route: 065
     Dates: start: 19970901, end: 20000105
  4. PAXIL [Concomitant]
     Route: 065
     Dates: start: 19970901, end: 20000105

REACTIONS (1)
  - MYOCARDIAL INFARCTION [None]
